FAERS Safety Report 5480649-8 (Version None)
Quarter: 2007Q4

REPORT INFORMATION
  Report Type: 
  Country: None (occurrence: None)
  Receive Date: 20071009
  Receipt Date: 20070920
  Transmission Date: 20080405
  Serious: No
  Sender: FDA-Public Use
  Company Number: US-JNJFOC-20070904646

PATIENT
  Age: 29 Year
  Sex: Female

DRUGS (3)
  1. INVEGA [Suspect]
     Indication: DRUG USE FOR UNKNOWN INDICATION
     Route: 048
     Dates: start: 20070801, end: 20070919
  2. KLONOPIN [Concomitant]
  3. LAMICTAL [Concomitant]

REACTIONS (2)
  - GALACTORRHOEA [None]
  - METRORRHAGIA [None]
